FAERS Safety Report 6233801-8 (Version None)
Quarter: 2009Q2

REPORT INFORMATION
  Report Type: 
  Country: None (occurrence: None)
  Receive Date: 20090618
  Receipt Date: 20090610
  Transmission Date: 20091009
  Serious: Yes (Other)
  Sender: FDA-Public Use
  Company Number: US-PFIZER INC-2005155313

PATIENT
  Sex: Female

DRUGS (13)
  1. PROVERA [Suspect]
     Indication: HORMONE REPLACEMENT THERAPY
     Dosage: 10 MG, UNK
     Route: 048
     Dates: start: 19910128, end: 19950422
  2. PROVERA [Suspect]
     Dosage: 2.5/5MG, UNK
     Route: 048
     Dates: start: 19950422, end: 19980515
  3. PREMARIN [Suspect]
     Indication: HORMONE REPLACEMENT THERAPY
     Dosage: 0.625 MG, UNK
     Dates: start: 19910128, end: 19980515
  4. PREMPRO [Suspect]
     Indication: HORMONE REPLACEMENT THERAPY
     Dosage: 0.625/2.5 MG, UNK
     Dates: start: 19980515, end: 20021031
  5. ACETYLSALICYLIC ACID [Concomitant]
     Indication: CARDIOVASCULAR EVENT PROPHYLAXIS
     Dosage: UNK
     Dates: start: 20021113
  6. ATROVENT [Concomitant]
     Indication: CHRONIC OBSTRUCTIVE PULMONARY DISEASE
     Dosage: UNK
     Dates: start: 20010323
  7. ATROVENT [Concomitant]
     Indication: ASTHMA
  8. FLONASE [Concomitant]
     Indication: SINUSITIS
     Dosage: UNK
     Dates: start: 20010803
  9. OSCAL [Concomitant]
     Indication: MINERAL SUPPLEMENTATION
     Dosage: UNK
     Dates: start: 20020101
  10. PRINIVIL [Concomitant]
     Indication: HYPERTENSION
     Dosage: UNK
     Dates: start: 19961126
  11. ZOCOR [Concomitant]
     Indication: BLOOD CHOLESTEROL INCREASED
     Dosage: UNK
     Dates: start: 20021113
  12. ZYRTEC [Concomitant]
     Indication: HYPERSENSITIVITY
     Dosage: UNK
     Dates: start: 20021113
  13. VITAMINS [Concomitant]
     Indication: SUPPLEMENTATION THERAPY
     Dosage: UNK

REACTIONS (1)
  - BREAST CANCER [None]
